FAERS Safety Report 25138189 (Version 1)
Quarter: 2025Q1

REPORT INFORMATION
  Report Type: Other
  Country: US (occurrence: US)
  Receive Date: 20250330
  Receipt Date: 20250330
  Transmission Date: 20250409
  Serious: Yes (Hospitalization, Other)
  Sender: VISTAPHARM
  Company Number: US-Vista Pharmaceuticals Inc.-2173881

PATIENT
  Age: 63 Year
  Sex: Female

DRUGS (7)
  1. SULFAMETHOXAZOLE\TRIMETHOPRIM [Suspect]
     Active Substance: SULFAMETHOXAZOLE\TRIMETHOPRIM
     Indication: Product used for unknown indication
  2. METHYLPREDNISOLONE [Suspect]
     Active Substance: METHYLPREDNISOLONE
  3. ACYCLOVIR [Concomitant]
     Active Substance: ACYCLOVIR
  4. LEVOFLOXACIN [Suspect]
     Active Substance: LEVOFLOXACIN
  5. PREDNISONE [Suspect]
     Active Substance: PREDNISONE
  6. MYCOPHENOLATE MOFETIL [Suspect]
     Active Substance: MYCOPHENOLATE MOFETIL
  7. TACROLIMUS [Suspect]
     Active Substance: TACROLIMUS

REACTIONS (2)
  - Drug reaction with eosinophilia and systemic symptoms [Recovered/Resolved]
  - Human herpesvirus 6 viraemia [Recovered/Resolved]
